FAERS Safety Report 9746371 (Version 2)
Quarter: 2013Q4

REPORT INFORMATION
  Report Type: Spontaneous
  Country: CL (occurrence: CL)
  Receive Date: 20131211
  Receipt Date: 20131220
  Transmission Date: 20140711
  Serious: Yes (Hospitalization, Other)
  Sender: FDA-Public Use
  Company Number: CL-PFIZER INC-2013352087

PATIENT
  Age: 90 Year
  Sex: Female

DRUGS (6)
  1. XALATAN [Suspect]
     Indication: GLAUCOMA
     Dosage: 1 DROP PER EYE AT NIGHT
     Route: 047
     Dates: start: 2006
  2. TIMOLOL [Concomitant]
  3. ANTI-PARKINSON AGENTS [Concomitant]
  4. DRUG USED IN DIABETES [Concomitant]
  5. ANTIHYPERTENSIVES [Concomitant]
  6. ANTICOAGULANTS [Concomitant]

REACTIONS (3)
  - Angiopathy [Recovering/Resolving]
  - Memory impairment [Recovering/Resolving]
  - Cataract [Not Recovered/Not Resolved]
